FAERS Safety Report 12526113 (Version 3)
Quarter: 2016Q3

REPORT INFORMATION
  Report Type: Spontaneous
  Country: US (occurrence: US)
  Receive Date: 20160705
  Receipt Date: 20160728
  Transmission Date: 20161109
  Serious: No
  Sender: FDA-Public Use
  Company Number: US-PFIZER INC-2016295477

PATIENT
  Age: 77 Year
  Sex: Female
  Weight: 86.17 kg

DRUGS (2)
  1. MAGNESIUM [Concomitant]
     Active Substance: MAGNESIUM
     Indication: ATRIAL FIBRILLATION
     Dosage: UNK
  2. IBRANCE [Suspect]
     Active Substance: PALBOCICLIB
     Indication: BREAST CANCER METASTATIC
     Dosage: 125 MG, CYCLIC (DAYS 1-21 EVERY 28 DAYS)
     Route: 048
     Dates: start: 20160518, end: 20160707

REACTIONS (6)
  - Muscle spasms [Unknown]
  - Cough decreased [Unknown]
  - Oral pain [Unknown]
  - Therapeutic response unexpected [Unknown]
  - Disease progression [Unknown]
  - Breast cancer metastatic [Unknown]

NARRATIVE: CASE EVENT DATE: 20160707
